FAERS Safety Report 10089095 (Version 1)
Quarter: 2014Q2

REPORT INFORMATION
  Report Type: Spontaneous
  Country: US (occurrence: None)
  Receive Date: 20140418
  Receipt Date: 20140418
  Transmission Date: 20141212
  Serious: Yes (Disabling)
  Sender: FDA-Public Use
  Company Number: None

PATIENT
  Age: 36 Day
  Sex: Female
  Weight: 91.63 kg

DRUGS (1)
  1. AMPHETAMINE SALTS [Suspect]
     Indication: ATTENTION DEFICIT/HYPERACTIVITY DISORDER
     Dosage: 1 PILL THREE TIMES DAILY TAKEN BY MOUTH
     Route: 048
     Dates: start: 20140412, end: 20140415

REACTIONS (8)
  - Product substitution issue [None]
  - Product quality issue [None]
  - Drug effect decreased [None]
  - Headache [None]
  - Eye pain [None]
  - Ocular discomfort [None]
  - Nausea [None]
  - Ear discomfort [None]
